FAERS Safety Report 23609202 (Version 1)
Quarter: 2024Q1

REPORT INFORMATION
  Report Type: Report from Study
  Country: US (occurrence: US)
  Receive Date: 20240308
  Receipt Date: 20240308
  Transmission Date: 20240409
  Serious: Yes (Hospitalization)
  Sender: FDA-Public Use
  Company Number: US-ABBVIE-5668501

PATIENT
  Age: 37 Year
  Sex: Female

DRUGS (1)
  1. SKYRIZI [Suspect]
     Active Substance: RISANKIZUMAB-RZAA
     Indication: Psoriatic arthropathy
     Route: 058
     Dates: start: 20240218, end: 20240305

REACTIONS (8)
  - Pyrexia [Unknown]
  - Tinnitus [Unknown]
  - Vomiting [Unknown]
  - Diarrhoea [Unknown]
  - Heart rate increased [Unknown]
  - Nausea [Unknown]
  - Ear pain [Unknown]
  - Pain in jaw [Unknown]

NARRATIVE: CASE EVENT DATE: 20240219
